FAERS Safety Report 9347457 (Version 4)
Quarter: 2014Q2

REPORT INFORMATION
  Report Type: Spontaneous
  Country: US (occurrence: US)
  Receive Date: 20130614
  Receipt Date: 20140404
  Transmission Date: 20141212
  Serious: Yes (Hospitalization)
  Sender: FDA-Public Use
  Company Number: US-B.I. PHARMACEUTICALS,INC./RIDGEFIELD-2013-BI-16556BP

PATIENT
  Sex: Female
  Weight: 58.8 kg

DRUGS (19)
  1. PRADAXA [Suspect]
     Indication: CEREBROVASCULAR ACCIDENT PROPHYLAXIS
     Dosage: 300 MG
     Route: 065
     Dates: start: 20120111, end: 20120403
  2. PRADAXA [Suspect]
     Indication: THROMBOSIS PROPHYLAXIS
  3. TRIAM/HCTZ [Concomitant]
     Route: 065
  4. NIFEDICAL XL [Concomitant]
     Route: 065
  5. FOSAMAX [Concomitant]
     Route: 065
  6. NAPROXEN [Concomitant]
     Route: 065
  7. QUINAPRIL [Concomitant]
     Dosage: 20 MG
     Route: 048
  8. PLAVIX [Concomitant]
     Route: 065
  9. ALENDRONATE [Concomitant]
     Route: 065
  10. PREDNISONE [Concomitant]
     Route: 065
  11. LIPITOR [Concomitant]
     Dosage: 10 MG
     Route: 048
  12. FUROSEMIDE [Concomitant]
     Route: 065
  13. COSOPT EYE DROP [Concomitant]
     Route: 065
  14. OMEPRAZOLE [Concomitant]
     Route: 065
  15. IBUPROFEN [Concomitant]
     Route: 065
  16. ASPIRIN [Concomitant]
     Dosage: 81 MG
     Route: 065
  17. PRILOSEC [Concomitant]
     Dosage: 20 MG
     Route: 048
  18. REFRESH [Concomitant]
     Route: 031
  19. VITAMIN D3 [Concomitant]
     Dosage: 1000 U
     Route: 048

REACTIONS (2)
  - Gastrointestinal haemorrhage [Unknown]
  - Haemorrhagic anaemia [Unknown]
